FAERS Safety Report 18132948 (Version 1)
Quarter: 2020Q3

REPORT INFORMATION
  Report Type: Spontaneous
  Country: US (occurrence: US)
  Receive Date: 20200811
  Receipt Date: 20200811
  Transmission Date: 20201103
  Serious: No
  Sender: FDA-Public Use
  Company Number: US-JNJFOC-20200808744

PATIENT

DRUGS (2)
  1. DARZALEX [Suspect]
     Active Substance: DARATUMUMAB
     Dosage: 400 MG VIALS: LOT: 19L032 EXP: 31?JAN?2022 AND 100 MG VIALS: LOT: BFI1018 EXP: 30?AUG?2021.
     Route: 065
  2. DARZALEX [Suspect]
     Active Substance: DARATUMUMAB
     Indication: PRODUCT USED FOR UNKNOWN INDICATION
     Dosage: 400 MG VIALS: LOT: 19L032 EXP: 31?JAN?2022 AND 100 MG VIALS: LOT: BFI1018 EXP: 30?AUG?2021.
     Route: 065

REACTIONS (5)
  - Hyperhidrosis [Unknown]
  - Flank pain [Unknown]
  - Infusion related reaction [Unknown]
  - Dyspnoea [Unknown]
  - Chills [Unknown]
